FAERS Safety Report 17139521 (Version 1)
Quarter: 2019Q4

REPORT INFORMATION
  Report Type: Report from Study
  Country: JP (occurrence: JP)
  Receive Date: 20191211
  Receipt Date: 20191211
  Transmission Date: 20200122
  Serious: Yes (Other)
  Sender: FDA-Public Use
  Company Number: JP-ROCHE-2490389

PATIENT

DRUGS (2)
  1. BEVACIZUMAB. [Suspect]
     Active Substance: BEVACIZUMAB
     Indication: GLIOBLASTOMA
     Route: 065
  2. TEMOZOLOMIDE. [Suspect]
     Active Substance: TEMOZOLOMIDE
     Indication: GLIOBLASTOMA
     Route: 065

REACTIONS (11)
  - Aspartate aminotransferase abnormal [Unknown]
  - Rash [Unknown]
  - Lymphopenia [Unknown]
  - Alanine aminotransferase abnormal [Unknown]
  - Hyponatraemia [Unknown]
  - Neutropenia [Unknown]
  - Anaemia [Unknown]
  - Hypokalaemia [Unknown]
  - Thrombocytopenia [Unknown]
  - Pneumonitis [Unknown]
  - Decreased appetite [Unknown]
